FAERS Safety Report 7141067-X (Version None)
Quarter: 2010Q4

REPORT INFORMATION
  Report Type: 
  Country: None (occurrence: None)
  Receive Date: 20101201
  Receipt Date: 20101201
  Transmission Date: 20110411
  Serious: Yes (Hospitalization)
  Sender: FDA-Public Use
  Company Number: None

PATIENT
  Sex: Male
  Weight: 87.3 kg

DRUGS (4)
  1. DEXAMETHASONE [Suspect]
     Dosage: 60 MG
  2. MERCAPTOPURINE [Suspect]
     Dosage: 2200 MG
  3. METHOTREXATE [Suspect]
     Dosage: 55 MG
  4. VINCRISTINE SULFATE [Suspect]
     Dosage: 2 MG

REACTIONS (5)
  - ASPERGILLOSIS [None]
  - HEADACHE [None]
  - MUCORMYCOSIS [None]
  - NEUTROPENIC SEPSIS [None]
  - PNEUMONIA [None]
